FAERS Safety Report 10173447 (Version 1)
Quarter: 2014Q2

REPORT INFORMATION
  Report Type: Spontaneous
  Country: US (occurrence: US)
  Receive Date: 20140515
  Receipt Date: 20140515
  Transmission Date: 20141212
  Serious: No
  Sender: FDA-Public Use
  Company Number: US-BAUSCH-BL-2013-000476

PATIENT
  Age: 26 Year
  Sex: Male

DRUGS (4)
  1. BROMDAY 0.09% [Suspect]
     Indication: POSTOPERATIVE CARE
     Dosage: 1 DROP; TWICE A DAY; OPHTHALMIC
     Route: 047
     Dates: start: 20130111, end: 20130116
  2. BROMDAY 0.09% [Suspect]
     Indication: OFF LABEL USE
  3. SULFACETAMIDE [Concomitant]
  4. HYPROMELLOSE [Concomitant]

REACTIONS (1)
  - Corneal disorder [Recovered/Resolved]
